FAERS Safety Report 8515188-0 (Version None)
Quarter: 2012Q3

REPORT INFORMATION
  Report Type: 
  Country: None (occurrence: None)
  Receive Date: 20120717
  Receipt Date: 20120614
  Transmission Date: 20120928
  Serious: Yes (Other)
  Sender: FDA-Public Use
  Company Number: JP-GLAXOSMITHKLINE-B0809315A

PATIENT
  Sex: Female

DRUGS (13)
  1. TETRAMIDE [Concomitant]
     Dosage: 30MG PER DAY
     Route: 048
  2. LEXOTAN [Concomitant]
     Dosage: 3MG PER DAY
     Route: 048
  3. VITAMIN B12 [Concomitant]
     Dosage: 1500MCG PER DAY
     Route: 048
  4. LAMICTAL [Suspect]
     Dosage: 25MG PER DAY
     Route: 048
     Dates: start: 20120606, end: 20120610
  5. FLUVOXAMINE MALEATE [Concomitant]
     Dosage: 150MG PER DAY
     Route: 048
  6. DIAZEPAM [Concomitant]
     Dosage: 5MG PER DAY
     Route: 048
  7. GASMOTIN [Concomitant]
     Dosage: 15MG PER DAY
     Route: 048
  8. PROMAZINE HYDROCHLORIDE [Concomitant]
     Route: 048
  9. LAMICTAL [Suspect]
     Indication: BIPOLAR II DISORDER
     Dosage: 25MG ALTERNATE DAYS
     Route: 048
     Dates: start: 20120530, end: 20120605
  10. DEPAKENE [Concomitant]
     Dosage: 200MG PER DAY
     Route: 048
  11. REFLEX (JAPAN) [Concomitant]
     Dosage: 15MG PER DAY
     Route: 048
  12. TERRANAS [Concomitant]
     Dosage: 10MG PER DAY
     Route: 048
  13. LORAZEPAM [Concomitant]
     Route: 048

REACTIONS (6)
  - ERYTHEMA [None]
  - HYPERHIDROSIS [None]
  - LYMPHADENOPATHY [None]
  - TOXIC SKIN ERUPTION [None]
  - PYREXIA [None]
  - ERYTHEMA MULTIFORME [None]
